FAERS Safety Report 23890558 (Version 6)
Quarter: 2024Q3

REPORT INFORMATION
  Report Type: Report from Study
  Country: CA (occurrence: CA)
  Receive Date: 20240523
  Receipt Date: 20240919
  Transmission Date: 20241016
  Serious: Yes (Other)
  Sender: ELI LILLY AND CO
  Company Number: CA-ELI_LILLY_AND_COMPANY-CA202404008048

PATIENT
  Age: 80 Year
  Sex: Female

DRUGS (10)
  1. ERBITUX [Suspect]
     Active Substance: CETUXIMAB
     Indication: Squamous cell carcinoma of head and neck
     Dosage: 330 MG, WEEKLY (1/W)
     Route: 042
     Dates: start: 20240410
  2. ERBITUX [Suspect]
     Active Substance: CETUXIMAB
     Dosage: 330 MG, WEEKLY (1/W)
     Route: 042
     Dates: start: 20240418
  3. ERBITUX [Suspect]
     Active Substance: CETUXIMAB
     Dosage: 330 MG, OTHER (EVERY 3 WEEKS)
     Route: 042
  4. ERBITUX [Suspect]
     Active Substance: CETUXIMAB
     Dosage: 317 MG, UNKNOWN
     Route: 042
  5. ERBITUX [Suspect]
     Active Substance: CETUXIMAB
     Dosage: 312 MG, UNKNOWN
     Route: 042
  6. VITAMIN D NOS [Concomitant]
     Active Substance: CHOLECALCIFEROL\ERGOCALCIFEROL
     Indication: Product used for unknown indication
  7. DEXAMETHASONE [Concomitant]
     Active Substance: DEXAMETHASONE
     Indication: Premedication
     Dosage: 8 MG, UNKNOWN
     Route: 065
  8. DIPHENHYDRAMINE [Concomitant]
     Active Substance: DIPHENHYDRAMINE
     Indication: Premedication
     Dosage: 50 MG, UNKNOWN
     Route: 065
  9. TINZAPARIN [Concomitant]
     Active Substance: TINZAPARIN
     Indication: Product used for unknown indication
  10. DALTEPARIN SODIUM [Concomitant]
     Active Substance: DALTEPARIN SODIUM
     Indication: Product used for unknown indication

REACTIONS (11)
  - Pulmonary embolism [Unknown]
  - Blood pressure increased [Unknown]
  - Wound infection [Not Recovered/Not Resolved]
  - Infusion site bruising [Unknown]
  - Anxiety [Unknown]
  - Pain [Unknown]
  - Off label use [Unknown]
  - Fatigue [Recovered/Resolved]
  - Weight decreased [Unknown]
  - Rash [Not Recovered/Not Resolved]
  - Pruritus [Not Recovered/Not Resolved]

NARRATIVE: CASE EVENT DATE: 20240410
